FAERS Safety Report 9795563 (Version 2)
Quarter: 2014Q1

REPORT INFORMATION
  Report Type: Spontaneous
  Country: US (occurrence: US)
  Receive Date: 20140103
  Receipt Date: 20140115
  Transmission Date: 20141002
  Serious: No
  Sender: FDA-Public Use
  Company Number: US-BAYER-2013-153924

PATIENT
  Age: 37 Year
  Sex: Female

DRUGS (1)
  1. BILTRICIDE [Suspect]
     Indication: INFECTION PARASITIC
     Dosage: 600 MG, UNK
     Route: 048
     Dates: start: 20130103

REACTIONS (2)
  - Food interaction [None]
  - Inappropriate schedule of drug administration [None]
